FAERS Safety Report 10463827 (Version 2)
Quarter: 2014Q3

REPORT INFORMATION
  Report Type: Spontaneous
  Country: JP (occurrence: JP)
  Receive Date: 20140919
  Receipt Date: 20140924
  Transmission Date: 20150326
  Serious: Yes (Hospitalization)
  Sender: FDA-Public Use
  Company Number: PHHY2014JP121205

PATIENT
  Age: 78 Year
  Sex: Female

DRUGS (4)
  1. FAMOTIDINE. [Suspect]
     Active Substance: FAMOTIDINE
     Indication: HYPERTENSION
  2. ELDECALCITOL [Suspect]
     Active Substance: ELDECALCITOL
     Indication: OSTEOPOROSIS
     Route: 048
  3. AMLODIPINE [Suspect]
     Active Substance: AMLODIPINE BESYLATE
     Indication: HYPERTENSION
     Route: 048
  4. VALSARTAN. [Suspect]
     Active Substance: VALSARTAN
     Indication: HYPERTENSION
     Route: 048

REACTIONS (8)
  - Malaise [Unknown]
  - Cholestasis [Recovering/Resolving]
  - Delirium [Recovering/Resolving]
  - Biliary cirrhosis primary [Unknown]
  - Hepatitis acute [Recovering/Resolving]
  - Decreased appetite [Unknown]
  - Jaundice [Recovering/Resolving]
  - Depression [Unknown]
